FAERS Safety Report 8512135-2 (Version None)
Quarter: 2012Q3

REPORT INFORMATION
  Report Type: 
  Country: None (occurrence: None)
  Receive Date: 20120716
  Receipt Date: 20120705
  Transmission Date: 20120928
  Serious: Yes (Hospitalization)
  Sender: FDA-Public Use
  Company Number: AU-ASTRAZENECA-2010SE13016

PATIENT
  Age: 785 Month
  Sex: Female

DRUGS (5)
  1. SOTALOL HCL [Concomitant]
  2. BLOOD PRESSURE MEDICATIONS [Concomitant]
  3. ARIMIDEX [Suspect]
     Indication: BREAST CANCER
     Route: 048
     Dates: start: 20091101
  4. PLAVIX [Concomitant]
  5. ASPIRIN [Concomitant]

REACTIONS (6)
  - HOT FLUSH [None]
  - PALPITATIONS [None]
  - NAUSEA [None]
  - FEELING ABNORMAL [None]
  - HAEMORRHAGE [None]
  - CYST [None]
